FAERS Safety Report 8353231-2 (Version None)
Quarter: 2012Q2

REPORT INFORMATION
  Report Type: 
  Country: None (occurrence: None)
  Receive Date: 20120511
  Receipt Date: 20120503
  Transmission Date: 20120825
  Serious: Yes (Other)
  Sender: FDA-Public Use
  Company Number: US-ASTRAZENECA-2012SE28692

PATIENT
  Sex: Female

DRUGS (4)
  1. NEXIUM [Suspect]
     Dosage: 40 MG, FOUR TIMES DAILY, TWO CAPSULES IN THE MORNING AND TWO CAPSULES IN THE NIGHT
     Route: 048
  2. NEXIUM [Suspect]
     Indication: ULCER HAEMORRHAGE
     Route: 048
     Dates: start: 20120429
  3. NEXIUM [Suspect]
     Route: 048
  4. PRILOSEC [Suspect]
     Indication: ULCER HAEMORRHAGE
     Route: 048

REACTIONS (5)
  - OFF LABEL USE [None]
  - DRUG INEFFECTIVE [None]
  - OVERDOSE [None]
  - VISION BLURRED [None]
  - VISUAL IMPAIRMENT [None]
